FAERS Safety Report 6898830-X (Version None)
Quarter: 2010Q3

REPORT INFORMATION
  Report Type: 
  Country: None (occurrence: None)
  Receive Date: 20100802
  Receipt Date: 20100719
  Transmission Date: 20110219
  Serious: Yes (Other)
  Sender: FDA-Public Use
  Company Number: GB-MYLANLABS-2010S1012860

PATIENT
  Sex: Male
  Weight: 73 kg

DRUGS (5)
  1. MIRTAZAPINE [Suspect]
     Indication: DEPRESSION
     Route: 048
     Dates: start: 20060601
  2. MIRTAZAPINE [Suspect]
     Indication: ANXIETY
     Route: 048
     Dates: start: 20060601
  3. VENLAFAXINE [Suspect]
     Indication: DEPRESSION
     Dates: start: 20060601
  4. VENLAFAXINE [Suspect]
     Indication: ANXIETY
     Dates: start: 20060601
  5. CLONAZEPAM [Concomitant]
     Indication: PRODUCT USED FOR UNKNOWN INDICATION

REACTIONS (1)
  - PARKINSONIAN GAIT [None]
